FAERS Safety Report 5628453-1 (Version None)
Quarter: 2008Q1

REPORT INFORMATION
  Report Type: 
  Country: None (occurrence: None)
  Receive Date: 20080215
  Receipt Date: 20080204
  Transmission Date: 20080703
  Serious: Yes (Other)
  Sender: FDA-Public Use
  Company Number: JP-PFIZER INC-2008006056

PATIENT
  Age: 3 Year
  Sex: Female

DRUGS (4)
  1. GABAPEN [Suspect]
     Indication: EPILEPSY
     Dosage: TEXT:1600 MG PER DAY
     Route: 048
  2. ZONISAMIDE [Concomitant]
     Indication: EPILEPSY
     Route: 048
  3. CLOBAZAM [Concomitant]
     Route: 048
  4. LANDSEN [Concomitant]
     Route: 048

REACTIONS (5)
  - CYANOSIS [None]
  - DIZZINESS [None]
  - FALL [None]
  - MANIA [None]
  - NERVOUSNESS [None]
